FAERS Safety Report 18241144 (Version 1)
Quarter: 2020Q3

REPORT INFORMATION
  Report Type: Spontaneous
  Country: DE (occurrence: DE)
  Receive Date: 20200908
  Receipt Date: 20200908
  Transmission Date: 20201103
  Serious: Yes (Hospitalization, Other)
  Sender: FDA-Public Use
  Company Number: DE-MYLANLABS-2020M1076452

PATIENT
  Age: 6 Month
  Sex: Male
  Weight: 7.3 kg

DRUGS (2)
  1. PHENOBARBITAL                      /00023202/ [Suspect]
     Active Substance: PHENOBARBITAL SODIUM
     Indication: PARTIAL SEIZURES
     Dosage: DAILY DOSE: 20 MG MILLGRAM(S) EVERY DAYS 2 SEPARATED DOSES
     Route: 048
     Dates: start: 20191115, end: 20200228
  2. LEVETIRACETAM. [Suspect]
     Active Substance: LEVETIRACETAM
     Indication: PARTIAL SEIZURES
     Dosage: DAILY DOSE: 260 MG MILLGRAM(S) EVERY DAYS 2 SEPARATED DOSES
     Route: 048
     Dates: start: 20200212, end: 20200228

REACTIONS (5)
  - Prescribed underdose [Recovered/Resolved]
  - Epilepsy [Recovered/Resolved]
  - Product monitoring error [Recovered/Resolved]
  - Drug monitoring procedure not performed [Recovered/Resolved]
  - Anticonvulsant drug level decreased [Recovered/Resolved]

NARRATIVE: CASE EVENT DATE: 20200228
